FAERS Safety Report 10073837 (Version 3)
Quarter: 2016Q3

REPORT INFORMATION
  Report Type: Spontaneous
  Country: US (occurrence: US)
  Receive Date: 20140413
  Receipt Date: 20160921
  Transmission Date: 20161108
  Serious: Yes (Other)
  Sender: FDA-Public Use
  Company Number: US-009507513-1404USA004029

PATIENT
  Sex: Male

DRUGS (1)
  1. PROPECIA [Suspect]
     Active Substance: FINASTERIDE
     Indication: ANDROGENETIC ALOPECIA
     Dosage: 1 MG, UNK
     Route: 048
     Dates: start: 1997, end: 20070726

REACTIONS (22)
  - Depression [Not Recovered/Not Resolved]
  - Squamous cell carcinoma of the tongue [Unknown]
  - Pyrexia [Unknown]
  - Nephrolithiasis [Unknown]
  - Neuropathy peripheral [Unknown]
  - Libido decreased [Unknown]
  - Head injury [Unknown]
  - Hyperlipidaemia [Unknown]
  - Panic attack [Unknown]
  - Seizure [Unknown]
  - Fatigue [Unknown]
  - Blood testosterone decreased [Unknown]
  - Emotional distress [Not Recovered/Not Resolved]
  - Cognitive disorder [Not Recovered/Not Resolved]
  - Erectile dysfunction [Not Recovered/Not Resolved]
  - Microalbuminuria [Unknown]
  - Type 2 diabetes mellitus [Unknown]
  - Treatment noncompliance [Unknown]
  - Epilepsy [Unknown]
  - Anxiety [Not Recovered/Not Resolved]
  - Sexual dysfunction [Not Recovered/Not Resolved]
  - Hypertension [Unknown]

NARRATIVE: CASE EVENT DATE: 2003
